FAERS Safety Report 5161483-5 (Version None)
Quarter: 2006Q4

REPORT INFORMATION
  Report Type: 
  Country: None (occurrence: None)
  Receive Date: 20061130
  Receipt Date: 20060817
  Transmission Date: 20070319
  Serious: No
  Sender: FDA-Public Use
  Company Number: 2006SP000790

PATIENT
  Age: 53 Year
  Sex: Female

DRUGS (2)
  1. WELLBUTRIN XL [Suspect]
     Indication: DRUG USE FOR UNKNOWN INDICATION
     Route: 048
  2. LUNESTA [Suspect]
     Indication: INSOMNIA
     Dosage: 1MG AT NIGHT
     Route: 048
     Dates: start: 20060210

REACTIONS (1)
  - MIDDLE INSOMNIA [None]
